FAERS Safety Report 7268151-4 (Version None)
Quarter: 2011Q1

REPORT INFORMATION
  Report Type: 
  Country: None (occurrence: None)
  Receive Date: 20110201
  Receipt Date: 20110119
  Transmission Date: 20110831
  Serious: Yes (Other)
  Sender: FDA-Public Use
  Company Number: CA-ELI_LILLY_AND_COMPANY-CA201011004497

PATIENT
  Age: 77 Year
  Sex: Male

DRUGS (9)
  1. FORTEO [Suspect]
     Indication: OSTEOPOROSIS
     Dosage: 20 UG, DAILY (1/D)
     Route: 058
     Dates: start: 20101006
  2. LORAZEPAM [Concomitant]
     Dosage: UNK, UNKNOWN
     Route: 065
  3. ZOPICLONE [Concomitant]
     Dosage: UNK, UNKNOWN
     Route: 065
  4. ADVAIR [Concomitant]
     Dosage: UNK, UNKNOWN
     Route: 065
  5. RAMIPRIL [Concomitant]
     Dosage: UNK, UNKNOWN
     Route: 065
  6. SPIRIVA [Concomitant]
     Dosage: UNK, UNKNOWN
     Route: 065
  7. FUROSEMIDE [Concomitant]
     Dosage: UNK, UNKNOWN
     Route: 065
  8. CITALOPRAM [Concomitant]
     Dosage: UNK, UNKNOWN
     Route: 065
  9. CARVEDILOL [Concomitant]
     Dosage: UNK, UNKNOWN
     Route: 065

REACTIONS (2)
  - LOSS OF CONSCIOUSNESS [None]
  - DIZZINESS [None]
